FAERS Safety Report 13000573 (Version 1)
Quarter: 2016Q4

REPORT INFORMATION
  Report Type: Spontaneous
  Country: US (occurrence: US)
  Receive Date: 20161206
  Receipt Date: 20161206
  Transmission Date: 20170207
  Serious: Yes (Other)
  Sender: FDA-Public Use
  Company Number: US-AMGEN-USASP2016168590

PATIENT
  Age: 70 Year
  Sex: Male

DRUGS (3)
  1. SENSIPAR [Suspect]
     Active Substance: CINACALCET HYDROCHLORIDE
     Indication: BLOOD PARATHYROID HORMONE INCREASED
     Dosage: 30 MG, QOD
     Route: 048
     Dates: start: 2016
  2. ELIQUIS [Concomitant]
     Active Substance: APIXABAN
  3. PLAVIX [Concomitant]
     Active Substance: CLOPIDOGREL BISULFATE

REACTIONS (4)
  - General physical health deterioration [Not Recovered/Not Resolved]
  - Off label use [Unknown]
  - Blood parathyroid hormone increased [Not Recovered/Not Resolved]
  - Blood calcium increased [Not Recovered/Not Resolved]
